FAERS Safety Report 7128801-X (Version None)
Quarter: 2010Q4

REPORT INFORMATION
  Report Type: 
  Country: None (occurrence: None)
  Receive Date: 20101130
  Receipt Date: 20070912
  Transmission Date: 20110411
  Serious: Yes (Death, Other)
  Sender: FDA-Public Use
  Company Number: AU-ROCHE-742588

PATIENT

DRUGS (1)
  1. CAPECITABINE [Suspect]
     Route: 065

REACTIONS (3)
  - DEATH [None]
  - DIARRHOEA [None]
  - RENAL FAILURE [None]
